FAERS Safety Report 8793803 (Version 1)
Quarter: 2012Q4

REPORT INFORMATION
  Report Type: 
  Country: AU (occurrence: AU)
  Receive Date: 20120917
  Receipt Date: 20120917
  Transmission Date: 20130627
  Serious: Yes (Other)
  Sender: FDA-Public Use
  Company Number: PHHY2012AU080059

PATIENT
  Age: 34 Year
  Sex: Male

DRUGS (1)
  1. CLOZARIL [Suspect]
     Dosage: UNK UKN, UNK

REACTIONS (5)
  - Bundle branch block right [Unknown]
  - Left atrial dilatation [Unknown]
  - Left ventricular hypertrophy [Unknown]
  - Conduction disorder [Unknown]
  - Electrocardiogram QT prolonged [Unknown]
